FAERS Safety Report 12711392 (Version 3)
Quarter: 2016Q4

REPORT INFORMATION
  Report Type: Spontaneous
  Country: US (occurrence: US)
  Receive Date: 20160902
  Receipt Date: 20161021
  Transmission Date: 20170207
  Serious: Yes (Hospitalization, Other)
  Sender: FDA-Public Use
  Company Number: US-ACTELION-A-NJ2016-141404

PATIENT
  Age: 66 Year
  Sex: Female

DRUGS (10)
  1. AMBRISENTAN [Suspect]
     Active Substance: AMBRISENTAN
     Indication: PULMONARY HYPERTENSION
     Dosage: 10 MG, QD
     Route: 065
     Dates: start: 20120502
  2. TYVASO [Suspect]
     Active Substance: TREPROSTINIL
     Dosage: 6 BREATHS, QID
     Route: 055
  3. ADCIRCA [Concomitant]
     Active Substance: TADALAFIL
  4. TYVASO [Suspect]
     Active Substance: TREPROSTINIL
     Dosage: 4 BREATHS, QID
     Route: 055
  5. WARFARIN [Concomitant]
     Active Substance: WARFARIN
  6. UPTRAVI [Suspect]
     Active Substance: SELEXIPAG
     Indication: PULMONARY HYPERTENSION
     Route: 048
  7. TYVASO [Suspect]
     Active Substance: TREPROSTINIL
     Dosage: 8 BREATHS, QID
     Route: 055
  8. TYVASO [Suspect]
     Active Substance: TREPROSTINIL
     Indication: PRODUCT USED FOR UNKNOWN INDICATION
     Dosage: 9 BREATHS, QID
     Route: 055
  9. REMODULIN [Suspect]
     Active Substance: TREPROSTINIL
     Indication: PRODUCT USED FOR UNKNOWN INDICATION
     Route: 065
  10. TYVASO [Suspect]
     Active Substance: TREPROSTINIL
     Dosage: 7 BREATHS, QID
     Route: 055

REACTIONS (27)
  - Dyspnoea [Unknown]
  - Oedema peripheral [Unknown]
  - Back pain [Unknown]
  - Syncope [Unknown]
  - Muscle tightness [Unknown]
  - Asthma [Recovered/Resolved]
  - Pain [Unknown]
  - Therapy non-responder [Recovered/Resolved]
  - Abdominal distension [Unknown]
  - Chest discomfort [Unknown]
  - Oxygen saturation decreased [Unknown]
  - Nocturnal dyspnoea [Unknown]
  - Flushing [Unknown]
  - Chest pain [Unknown]
  - Fluid overload [Unknown]
  - Gait disturbance [Unknown]
  - Pulmonary pain [Unknown]
  - Feeling abnormal [Unknown]
  - Candida infection [Unknown]
  - Tearfulness [Unknown]
  - Cough [Unknown]
  - Weight decreased [Unknown]
  - Respiratory disorder [Unknown]
  - Malaise [Unknown]
  - Drug intolerance [Recovered/Resolved]
  - Hypersensitivity [Unknown]
  - Nasal congestion [Unknown]
